FAERS Safety Report 6105837-9 (Version None)
Quarter: 2009Q1

REPORT INFORMATION
  Report Type: 
  Country: None (occurrence: None)
  Receive Date: 20090306
  Receipt Date: 20061206
  Transmission Date: 20090719
  Serious: Yes (Hospitalization)
  Sender: FDA-Public Use
  Company Number: FR-PFIZER INC-2006144302

PATIENT

DRUGS (2)
  1. SUNITINIB MALATE [Suspect]
     Indication: METASTATIC RENAL CELL CARCINOMA
     Dosage: 25 MG, 1X/DAY
     Route: 048
     Dates: start: 20051128
  2. FLUINDIONE [Suspect]
     Dates: start: 20061114, end: 20061120

REACTIONS (3)
  - ANAEMIA [None]
  - COAGULOPATHY [None]
  - OBSTRUCTION [None]
